FAERS Safety Report 6065167-0 (Version None)
Quarter: 2009Q1

REPORT INFORMATION
  Report Type: 
  Country: None (occurrence: None)
  Receive Date: 20090204
  Receipt Date: 20090128
  Transmission Date: 20090719
  Serious: Yes (Hospitalization)
  Sender: FDA-Public Use
  Company Number: CA-ASTRAZENECA-2009UW02625

PATIENT
  Sex: Female

DRUGS (1)
  1. XYLOCAINE TOPICAL FILM [Suspect]
     Route: 065

REACTIONS (3)
  - ACCIDENTAL OVERDOSE [None]
  - CONVULSION [None]
  - MEDICATION ERROR [None]
